FAERS Safety Report 19483764 (Version 1)
Quarter: 2021Q3

REPORT INFORMATION
  Report Type: Spontaneous
  Country: US (occurrence: US)
  Receive Date: 20210701
  Receipt Date: 20210701
  Transmission Date: 20211014
  Serious: No
  Sender: FDA-Public Use
  Company Number: US-ROCHE-2730672

PATIENT
  Sex: Female

DRUGS (6)
  1. KLONOPIN [Suspect]
     Active Substance: CLONAZEPAM
     Indication: ADRENAL DISORDER
  2. KLONOPIN [Suspect]
     Active Substance: CLONAZEPAM
     Indication: PALPITATIONS
  3. KLONOPIN [Suspect]
     Active Substance: CLONAZEPAM
     Indication: PANIC ATTACK
     Dosage: ONGOING: YES
     Route: 048
  4. KLONOPIN [Suspect]
     Active Substance: CLONAZEPAM
     Indication: ANXIETY
  5. KLONOPIN [Suspect]
     Active Substance: CLONAZEPAM
     Indication: HYPOTHYROIDISM
  6. KLONOPIN [Suspect]
     Active Substance: CLONAZEPAM
     Indication: ENDOCRINE DISORDER

REACTIONS (4)
  - Intentional product use issue [Unknown]
  - Hormone level abnormal [Unknown]
  - Off label use [Unknown]
  - Drug tolerance decreased [Unknown]
